FAERS Safety Report 25745904 (Version 2)
Quarter: 2025Q4

REPORT INFORMATION
  Report Type: Report from Study
  Country: CA (occurrence: CA)
  Receive Date: 20250901
  Receipt Date: 20251013
  Transmission Date: 20260118
  Serious: Yes (Other)
  Sender: NOVARTIS
  Company Number: CA-002147023-NVSC2025CA136134

PATIENT
  Sex: Female

DRUGS (1)
  1. KESIMPTA [Suspect]
     Active Substance: OFATUMUMAB
     Indication: Maternal exposure via partner during pregnancy
     Dosage: EXPOSURE VIA PARTNER (FROM 10 JUL 2025 AT AN UNKNOWN DOSE (SUBCUTANEOUS USE)
     Route: 050

REACTIONS (3)
  - Premature delivery [Unknown]
  - Maternal exposure via partner during pregnancy [Unknown]
  - Normal newborn [Unknown]
